FAERS Safety Report 12518511 (Version 1)
Quarter: 2016Q2

REPORT INFORMATION
  Report Type: Spontaneous
  Country: ES (occurrence: ES)
  Receive Date: 20160630
  Receipt Date: 20160630
  Transmission Date: 20160815
  Serious: Yes (Hospitalization)
  Sender: FDA-Public Use
  Company Number: ES-PFIZER INC-2016317102

PATIENT
  Age: 53 Year
  Sex: Male

DRUGS (10)
  1. EZETROL [Concomitant]
     Active Substance: EZETIMIBE
     Dosage: 10 MG, 1X/DAY
     Route: 048
  2. ACETYLSALICYLIC ACID [Concomitant]
     Active Substance: ASPIRIN
     Dosage: 100 MG, 1X/DAY
     Route: 048
  3. ALDACTONE [Suspect]
     Active Substance: SPIRONOLACTONE
     Dosage: 50 MG, 1X/DAY
     Route: 048
     Dates: start: 2015, end: 20151226
  4. ENALAPRIL [Concomitant]
     Active Substance: ENALAPRIL
     Dosage: 25 MG, 1X/DAY
     Route: 048
  5. OMEPRAZOL [Concomitant]
     Active Substance: OMEPRAZOLE
     Dosage: 20 MG, 1X/DAY
     Route: 048
  6. LANTUS [Concomitant]
     Active Substance: INSULIN GLARGINE
     Dosage: 22 IU, 1X/DAY
     Route: 058
  7. SPIRAXIN [Concomitant]
     Dosage: 400 MG, 2X/DAY
     Route: 048
  8. TRADJENTA [Concomitant]
     Active Substance: LINAGLIPTIN
     Dosage: 5 MG, 1X/DAY
     Route: 048
  9. FUROSEMIDE. [Interacting]
     Active Substance: FUROSEMIDE
     Dosage: 20 MG, 1X/DAY
     Route: 048
     Dates: start: 2015
  10. NEBIVOLOL. [Concomitant]
     Active Substance: NEBIVOLOL
     Dosage: 5 MG, 2X/DAY
     Route: 048

REACTIONS (2)
  - Drug interaction [Recovered/Resolved]
  - Hepatic encephalopathy [Recovered/Resolved]

NARRATIVE: CASE EVENT DATE: 20151226
